FAERS Safety Report 7069094-1 (Version None)
Quarter: 2010Q4

REPORT INFORMATION
  Report Type: 
  Country: None (occurrence: None)
  Receive Date: 20101028
  Receipt Date: 20101020
  Transmission Date: 20110411
  Serious: Yes (Hospitalization)
  Sender: FDA-Public Use
  Company Number: A0789889A

PATIENT
  Age: 47 Year
  Sex: Male
  Weight: 115.9 kg

DRUGS (11)
  1. AVANDIA [Suspect]
     Indication: DIABETES MELLITUS
     Dosage: 8MG PER DAY
     Route: 048
     Dates: start: 20000701, end: 20071101
  2. AMBIEN [Concomitant]
  3. PREDNISONE [Concomitant]
  4. CLONIDINE [Concomitant]
  5. PROCARDIA [Concomitant]
  6. LABETALOL HCL [Concomitant]
  7. ALLOPURINOL [Concomitant]
  8. LIPITOR [Concomitant]
  9. CELLCEPT [Concomitant]
  10. FOSAMAX [Concomitant]
  11. RANITIDINE [Concomitant]

REACTIONS (6)
  - ACUTE CORONARY SYNDROME [None]
  - ATRIAL FIBRILLATION [None]
  - CARDIAC FAILURE CONGESTIVE [None]
  - ISCHAEMIC CARDIOMYOPATHY [None]
  - MYOCARDIAL INFARCTION [None]
  - MYOCARDIAL ISCHAEMIA [None]
